FAERS Safety Report 7398128-X (Version None)
Quarter: 2011Q2

REPORT INFORMATION
  Report Type: 
  Country: None (occurrence: None)
  Receive Date: 20110406
  Receipt Date: 20110329
  Transmission Date: 20111010
  Serious: Yes (Other)
  Sender: FDA-Public Use
  Company Number: IE-ROCHE-751820

PATIENT
  Sex: Female
  Weight: 89 kg

DRUGS (3)
  1. PRAVASTATIN [Concomitant]
     Route: 048
  2. ROACTEMRA [Suspect]
     Dosage: INFUSION, DOSE WITH-HELD
     Route: 042
     Dates: start: 20101014, end: 20110104
  3. DELTACORTRIL [Concomitant]
     Route: 048

REACTIONS (2)
  - HEPATIC STEATOSIS [None]
  - LIVER FUNCTION TEST ABNORMAL [None]
